FAERS Safety Report 25251044 (Version 1)
Quarter: 2025Q2

REPORT INFORMATION
  Report Type: Spontaneous
  Country: GB (occurrence: GB)
  Receive Date: 20250429
  Receipt Date: 20250429
  Transmission Date: 20250717
  Serious: Yes (Other)
  Sender: TEVA
  Company Number: GB-MHRA-TPP42310186C14941574YC1745480022366

PATIENT
  Age: 64 Year
  Sex: Female
  Weight: 54 kg

DRUGS (11)
  1. NAPROXEN [Suspect]
     Active Substance: NAPROXEN
     Indication: Ill-defined disorder
     Route: 065
     Dates: start: 20250424
  2. CARBOMER [Concomitant]
     Active Substance: CARBOMER
     Indication: Ill-defined disorder
     Route: 065
     Dates: start: 20241015
  3. FENBID [Concomitant]
     Indication: Ill-defined disorder
     Route: 065
     Dates: start: 20241015, end: 20250423
  4. NAPROXEN [Concomitant]
     Active Substance: NAPROXEN
     Indication: Ill-defined disorder
     Dosage: TAKE ONE TWICE DAILY AFTER FOOD
     Route: 065
     Dates: start: 20250403
  5. HYDROXOCOBALAMIN [Concomitant]
     Active Substance: HYDROXOCOBALAMIN
     Indication: Ill-defined disorder
     Dosage: IM INJECTION EVERY 2MONTHS
     Route: 065
     Dates: start: 20231122
  6. IBUPROFEN [Concomitant]
     Active Substance: IBUPROFEN
     Indication: Ill-defined disorder
     Route: 065
     Dates: start: 20250409
  7. OMEPRAZOLE [Concomitant]
     Active Substance: OMEPRAZOLE
     Indication: Ill-defined disorder
     Dosage: TAKE ONE DAILY
     Route: 065
     Dates: start: 20240624
  8. ATORVASTATIN [Concomitant]
     Active Substance: ATORVASTATIN
     Indication: Ill-defined disorder
     Dosage: TAKE ONE DAILY AT NIGHT FOR CHOLESTEROL
     Route: 065
     Dates: start: 20240624
  9. ACETAMINOPHEN [Concomitant]
     Active Substance: ACETAMINOPHEN
     Indication: Ill-defined disorder
     Dosage: TAKE ONE TO TWO TABLETS FOUR TIMES A DAY WHEN R...
     Route: 065
     Dates: start: 20250417
  10. FENOFIBRATE [Concomitant]
     Active Substance: FENOFIBRATE
     Indication: Ill-defined disorder
     Dosage: 1 TABLET ONCE DAILY
     Route: 065
     Dates: start: 20240624
  11. DIETHYLAMINE SALICYLATE [Concomitant]
     Active Substance: DIETHYLAMINE SALICYLATE
     Indication: Ill-defined disorder
     Route: 065
     Dates: start: 20250423

REACTIONS (1)
  - Gastrointestinal disorder [Recovered/Resolved]

NARRATIVE: CASE EVENT DATE: 20250424
